FAERS Safety Report 8031197-2 (Version None)
Quarter: 2012Q1

REPORT INFORMATION
  Report Type: 
  Country: None (occurrence: None)
  Receive Date: 20120109
  Receipt Date: 20120104
  Transmission Date: 20120608
  Serious: Yes (Hospitalization)
  Sender: FDA-Public Use
  Company Number: US-BAYER-201039585NA

PATIENT
  Age: 41 Year
  Sex: Female

DRUGS (6)
  1. FLONASE [Concomitant]
     Route: 045
  2. BENICAR HCT [Concomitant]
     Route: 048
  3. VERAPAMIL [Concomitant]
     Indication: HYPERTENSION
     Dosage: 240 MG, UNK
     Route: 048
     Dates: start: 19970101
  4. BENICAR [Concomitant]
     Indication: HYPERTENSION
     Dosage: 20 MG, UNK
     Route: 048
  5. GERITOL [FERRIC AMMONIUM CITRATE,METHIONINE,VITAMIN B NOS] [Concomitant]
     Route: 048
  6. YAZ [Suspect]
     Dates: start: 20070501, end: 20070601

REACTIONS (1)
  - PULMONARY EMBOLISM [None]
